FAERS Safety Report 16627356 (Version 1)
Quarter: 2019Q3

REPORT INFORMATION
  Report Type: Report from Study
  Country: US (occurrence: US)
  Receive Date: 20190724
  Receipt Date: 20190724
  Transmission Date: 20191004
  Serious: Yes (Hospitalization, Other)
  Sender: FDA-Public Use
  Company Number: US-MYLANLABS-2019M1065027

PATIENT
  Age: 48 Year
  Sex: Female
  Weight: 35 kg

DRUGS (27)
  1. TACROLIMUS. [Suspect]
     Active Substance: TACROLIMUS
     Dosage: 1.5 MILLIGRAM, QD
     Route: 048
     Dates: start: 20180310
  2. TACROLIMUS. [Suspect]
     Active Substance: TACROLIMUS
     Dosage: 2 MILLIGRAM, BID
     Route: 048
  3. BASILIXIMAB [Suspect]
     Active Substance: BASILIXIMAB
     Indication: PRODUCT USED FOR UNKNOWN INDICATION
     Dosage: 20 MILLIGRAM, QD
     Route: 048
     Dates: start: 20171008, end: 20171009
  4. ATORVASTATIN [Concomitant]
     Active Substance: ATORVASTATIN
     Dosage: UNK
  5. SENNA-S                            /00936101/ [Concomitant]
     Dosage: UNK
  6. IMODIUM [Concomitant]
     Active Substance: LOPERAMIDE HYDROCHLORIDE
     Dosage: UNK
  7. PREDNISONE. [Suspect]
     Active Substance: PREDNISONE
     Indication: IMMUNOSUPPRESSION
     Dosage: 20 MILLIGRAM, QD
     Route: 048
     Dates: start: 20171013
  8. ALPHAGAN P [Concomitant]
     Active Substance: BRIMONIDINE TARTRATE
     Dosage: UNK
  9. CARNITINE [Concomitant]
     Active Substance: CARNITINE
     Dosage: UNK
  10. LUMIGAN [Concomitant]
     Active Substance: BIMATOPROST
     Dosage: UNK
  11. TACROLIMUS. [Suspect]
     Active Substance: TACROLIMUS
     Indication: IMMUNOSUPPRESSION
     Dosage: 3 MILLIGRAM, BID
     Route: 048
     Dates: start: 20171008
  12. ASPIRIN                            /00002701/ [Concomitant]
     Active Substance: ASPIRIN
     Dosage: UNK
  13. BACTRIM [Concomitant]
     Active Substance: SULFAMETHOXAZOLE\TRIMETHOPRIM
     Dosage: UNK
  14. PREDNISONE. [Suspect]
     Active Substance: PREDNISONE
     Dosage: 5 MILLIGRAM, QD
     Route: 048
     Dates: start: 20171109
  15. PREDNISONE. [Suspect]
     Active Substance: PREDNISONE
     Dosage: 20 MILLIGRAM, QD
     Route: 048
     Dates: start: 20171008
  16. MYCOPHENOLATE MOFETIL. [Suspect]
     Active Substance: MYCOPHENOLATE MOFETIL
     Indication: IMMUNOSUPPRESSION
     Dosage: 250 MILLIGRAM, QID
     Route: 048
     Dates: start: 20171013
  17. VITAMIN D                          /00318501/ [Concomitant]
     Active Substance: CHOLECALCIFEROL
     Dosage: UNK
  18. NEXIUM [Concomitant]
     Active Substance: ESOMEPRAZOLE MAGNESIUM
     Dosage: UNK
  19. DIFLUCAN [Concomitant]
     Active Substance: FLUCONAZOLE
     Dosage: UNK
  20. SYNTHROID [Concomitant]
     Active Substance: LEVOTHYROXINE SODIUM
     Dosage: UNK
  21. K-PHOS NEUTRAL [Concomitant]
     Active Substance: POTASSIUM PHOSPHATE\SODIUM PHOSPHATE
     Dosage: UNK
  22. TIMOPTIC [Concomitant]
     Active Substance: TIMOLOL MALEATE
     Dosage: UNK
  23. COENZYME Q10 [Concomitant]
     Active Substance: UBIDECARENONE
     Dosage: UNK
  24. VALCYTE [Concomitant]
     Active Substance: VALGANCICLOVIR HYDROCHLORIDE
     Dosage: UNK
  25. NORVASC [Concomitant]
     Active Substance: AMLODIPINE BESYLATE
     Dosage: UNK
  26. SODIUM BICARBONATE. [Concomitant]
     Active Substance: SODIUM BICARBONATE
     Dosage: UNK
  27. FISH OIL [Concomitant]
     Active Substance: FISH OIL
     Dosage: UNK

REACTIONS (5)
  - Chest pain [Recovered/Resolved]
  - Acute kidney injury [Recovered/Resolved]
  - Anaemia [Recovered/Resolved]
  - Dehydration [Recovered/Resolved]
  - Cytomegalovirus infection [Recovered/Resolved]

NARRATIVE: CASE EVENT DATE: 20171014
